FAERS Safety Report 24417212 (Version 1)
Quarter: 2024Q4

REPORT INFORMATION
  Report Type: Report from Study
  Country: BR (occurrence: BR)
  Receive Date: 20241009
  Receipt Date: 20241009
  Transmission Date: 20250115
  Serious: Yes (Hospitalization, Other)
  Sender: JOHNSON AND JOHNSON
  Company Number: BR-JNJFOC-20241025398

PATIENT
  Age: 46 Year
  Sex: Male
  Weight: 51 kg

DRUGS (3)
  1. REMICADE [Suspect]
     Active Substance: INFLIXIMAB
     Indication: Colitis ulcerative
     Dosage: DILUTE 3 AMPOULES OF 100MG/10ML IN 250ML OF SALINE SOLUTION EVERY EIGHT WEEKS IN AN INFUSION LASTING
     Route: 041
     Dates: start: 2022
  2. REMICADE [Suspect]
     Active Substance: INFLIXIMAB
     Indication: Colitis ulcerative
  3. REMICADE [Suspect]
     Active Substance: INFLIXIMAB
     Indication: Colitis ulcerative

REACTIONS (13)
  - Diarrhoea haemorrhagic [Unknown]
  - Dizziness [Recovering/Resolving]
  - Pain [Unknown]
  - Drug hypersensitivity [Recovering/Resolving]
  - Weight decreased [Unknown]
  - Weight fluctuation [Unknown]
  - Diarrhoea [Unknown]
  - Abdominal pain [Unknown]
  - Pruritus [Recovering/Resolving]
  - Infusion related reaction [Unknown]
  - Blood pressure decreased [Recovering/Resolving]
  - Product prescribing error [Unknown]
  - Loss of therapeutic response [Unknown]

NARRATIVE: CASE EVENT DATE: 20240901
